FAERS Safety Report 17216250 (Version 2)
Quarter: 2020Q1

REPORT INFORMATION
  Report Type: Report from Study
  Country: HU (occurrence: HU)
  Receive Date: 20191230
  Receipt Date: 20200122
  Transmission Date: 20200409
  Serious: Yes (Death)
  Sender: FDA-Public Use
  Company Number: HU-PFIZER INC-2019552198

PATIENT
  Age: 74 Year
  Sex: Female

DRUGS (2)
  1. AZACITIDINE. [Suspect]
     Active Substance: AZACITIDINE
     Indication: ACUTE MYELOID LEUKAEMIA
     Dosage: 104.25 MG, CYCLIC (DAILY FOR 7 DAYS)
     Route: 058
     Dates: start: 20190813, end: 20191017
  2. PLACEBO [Suspect]
     Active Substance: UNSPECIFIED INGREDIENT
     Indication: ACUTE MYELOID LEUKAEMIA
     Dosage: UNK
     Route: 048
     Dates: start: 20190813, end: 20191110

REACTIONS (1)
  - Death [Fatal]

NARRATIVE: CASE EVENT DATE: 20191204
